FAERS Safety Report 15056983 (Version 1)
Quarter: 2018Q2

REPORT INFORMATION
  Report Type: Spontaneous
  Country: US (occurrence: US)
  Receive Date: 20180604
  Receipt Date: 20180604
  Transmission Date: 20180711
  Serious: No
  Sender: FDA-Public Use
  Company Number: None

PATIENT
  Age: 29 Year
  Sex: Female
  Weight: 99.79 kg

DRUGS (3)
  1. TYLENOL [Concomitant]
     Active Substance: ACETAMINOPHEN
  2. DOXEPIN HCL 50MG CAPS [Suspect]
     Active Substance: DOXEPIN HYDROCHLORIDE
     Indication: DEPRESSION
     Dosage: QUANTITY:30 TOT - TOTAL;?
     Route: 048
     Dates: start: 20180418
  3. ZOLOFT (SERTRALINE HCL) [Concomitant]

REACTIONS (1)
  - Somnolence [None]
